FAERS Safety Report 12932836 (Version 4)
Quarter: 2018Q4

REPORT INFORMATION
  Report Type: Spontaneous
  Country: US (occurrence: US)
  Receive Date: 20161111
  Receipt Date: 20181113
  Transmission Date: 20190204
  Serious: No
  Sender: FDA-Public Use
  Company Number: US-PFIZER INC-2016526584

PATIENT
  Age: 60 Year
  Sex: Female

DRUGS (1)
  1. GENOTROPIN MQ [Suspect]
     Active Substance: SOMATROPIN
     Indication: HYPOPITUITARISM
     Dosage: 0.4 MG, 1X/DAY
     Dates: start: 20160920

REACTIONS (5)
  - Malaise [Unknown]
  - Influenza [Unknown]
  - Therapeutic response unexpected [Unknown]
  - Sleep disorder [Unknown]
  - Pre-existing condition improved [Unknown]
